FAERS Safety Report 13001356 (Version 2)
Quarter: 2016Q4

REPORT INFORMATION
  Report Type: Spontaneous
  Country: None (occurrence: US)
  Receive Date: 20161206
  Receipt Date: 20161215
  Transmission Date: 20170207
  Serious: Yes (Death)
  Sender: FDA-Public Use
  Company Number: US-AMAG PHARMACEUTICALS, INC.-AMAG201602875

PATIENT

DRUGS (1)
  1. FERAHEME [Suspect]
     Active Substance: FERUMOXYTOL NON-STOICHIOMETRIC MAGNETITE
     Indication: PRODUCT USED FOR UNKNOWN INDICATION
     Dosage: 510 MG, SINGLE
     Route: 041
     Dates: start: 20161129

REACTIONS (8)
  - Intestinal ischaemia [Fatal]
  - Abdominal pain [Unknown]
  - Chest discomfort [Unknown]
  - Cardio-respiratory arrest [Fatal]
  - Nausea [Unknown]
  - Hyperhidrosis [Unknown]
  - Vomiting [Unknown]
  - Tachycardia [Unknown]

NARRATIVE: CASE EVENT DATE: 20161129
